FAERS Safety Report 7012996-2 (Version None)
Quarter: 2010Q3

REPORT INFORMATION
  Report Type: 
  Country: None (occurrence: None)
  Receive Date: 20100924
  Receipt Date: 20100908
  Transmission Date: 20110219
  Serious: Yes (Hospitalization, Other)
  Sender: FDA-Public Use
  Company Number: CA-SANOFI-AVENTIS-2010SA054270

PATIENT
  Age: 80 Year
  Sex: Female
  Weight: 83 kg

DRUGS (19)
  1. BLINDED THERAPY [Suspect]
     Indication: ACUTE CORONARY SYNDROME
     Route: 042
     Dates: start: 20100905, end: 20100907
  2. ASPIRIN [Suspect]
     Indication: ACUTE CORONARY SYNDROME
     Route: 048
  3. PLAVIX [Suspect]
     Indication: ACUTE CORONARY SYNDROME
     Route: 048
  4. EPTIFIBATIDE [Suspect]
     Indication: ACUTE CORONARY SYNDROME
     Route: 042
  5. HEPARIN [Concomitant]
     Route: 040
     Dates: start: 20100905, end: 20100905
  6. HEPARIN [Concomitant]
     Dosage: UNIT: IU/HR
     Route: 041
     Dates: start: 20100905, end: 20100905
  7. ESOMEPRAZOLE MAGNESIUM [Concomitant]
     Dates: start: 20100905
  8. SYNTHROID [Concomitant]
     Dates: start: 20100905
  9. ALISKIREN [Concomitant]
     Dates: start: 20100905
  10. FERROUS SULFATE [Concomitant]
     Dates: start: 20100905
  11. SIMVASTATIN [Concomitant]
     Dates: start: 20100905
  12. TIAZAC [Concomitant]
     Dates: start: 20100905
  13. AVAPRO [Concomitant]
     Dates: start: 20100905
  14. ALLOPURINOL [Concomitant]
     Dates: start: 20100905
  15. BISOPROLOL FUMARATE [Concomitant]
     Dates: start: 20100905
  16. HUMULIN 70/30 [Concomitant]
     Dates: start: 20100906
  17. ACETYLCYSTEINE [Concomitant]
     Dates: start: 20100906, end: 20100906
  18. PANTOPRAZOLE [Concomitant]
     Dates: start: 20100907, end: 20100907
  19. MORPHINE [Concomitant]
     Dates: start: 20100907

REACTIONS (2)
  - LOWER GASTROINTESTINAL HAEMORRHAGE [None]
  - PULMONARY EMBOLISM [None]
